FAERS Safety Report 18050157 (Version 1)
Quarter: 2020Q3

REPORT INFORMATION
  Report Type: Spontaneous
  Country: GB (occurrence: GB)
  Receive Date: 20200721
  Receipt Date: 20200721
  Transmission Date: 20201103
  Serious: Yes (Hospitalization)
  Sender: FDA-Public Use
  Company Number: GB-PFIZER INC-2020274300

PATIENT
  Age: 84 Year
  Sex: Female

DRUGS (4)
  1. DERMOL 500 LOTION [Concomitant]
     Dosage: 1 DF, AS NEEDED
     Route: 061
  2. OMEPRAZOLE. [Suspect]
     Active Substance: OMEPRAZOLE
     Dosage: 20 MG, DAILY IN THE MORNING
     Route: 048
     Dates: end: 20200412
  3. AMLODIPINE BESILATE [Suspect]
     Active Substance: AMLODIPINE BESYLATE
     Dosage: 5 MG, DAILY IN THE MORNING
     Route: 048
     Dates: end: 20200412
  4. CANDESARTAN. [Suspect]
     Active Substance: CANDESARTAN
     Dosage: 4 MG, DAILY IN THE MORNING
     Route: 048

REACTIONS (4)
  - Hyponatraemia [Recovering/Resolving]
  - Dizziness [Recovering/Resolving]
  - Hypotension [Recovering/Resolving]
  - Malaise [Recovering/Resolving]

NARRATIVE: CASE EVENT DATE: 20200412
